FAERS Safety Report 12341858 (Version 1)
Quarter: 2016Q2

REPORT INFORMATION
  Report Type: Report from Study
  Country: GB (occurrence: GB)
  Receive Date: 20160506
  Receipt Date: 20160506
  Transmission Date: 20160815
  Serious: Yes (Other)
  Sender: FDA-Public Use
  Company Number: GB-JNJFOC-20160426091

PATIENT
  Sex: Female

DRUGS (1)
  1. STELARA [Suspect]
     Active Substance: USTEKINUMAB
     Indication: PSORIATIC ARTHROPATHY
     Route: 058

REACTIONS (6)
  - Hypersensitivity [Unknown]
  - Swollen tongue [Unknown]
  - Off label use [Unknown]
  - Tongue blistering [Unknown]
  - Eating disorder symptom [Unknown]
  - Inappropriate schedule of drug administration [Unknown]
